FAERS Safety Report 20192525 (Version 5)
Quarter: 2022Q1

REPORT INFORMATION
  Report Type: Report from Study
  Country: US (occurrence: US)
  Receive Date: 20211216
  Receipt Date: 20220206
  Transmission Date: 20220423
  Serious: Yes (Hospitalization, Other)
  Sender: FDA-Public Use
  Company Number: US-NOVARTISTESTPH-NVSC2021US284994

PATIENT
  Age: 77 Year
  Sex: Male

DRUGS (2)
  1. ENTRESTO [Suspect]
     Active Substance: SACUBITRIL\VALSARTAN
     Indication: Product used for unknown indication
     Dosage: 1 DOSAGE FORM OF 24/26 MG, BID
     Route: 048
     Dates: start: 20211125
  2. ENTRESTO [Suspect]
     Active Substance: SACUBITRIL\VALSARTAN
     Dosage: 1 DOSAGE FORM OF 49/51MG, BID
     Route: 048

REACTIONS (14)
  - Sepsis [Not Recovered/Not Resolved]
  - Rotator cuff syndrome [Not Recovered/Not Resolved]
  - Erythema [Not Recovered/Not Resolved]
  - Soft tissue infection [Not Recovered/Not Resolved]
  - Cardiac valve disease [Not Recovered/Not Resolved]
  - Cardiac hypertrophy [Not Recovered/Not Resolved]
  - Syncope [Not Recovered/Not Resolved]
  - Asthenia [Not Recovered/Not Resolved]
  - Hypertension [Not Recovered/Not Resolved]
  - Hypersomnia [Unknown]
  - Palpitations [Recovering/Resolving]
  - Hypotension [Not Recovered/Not Resolved]
  - Fatigue [Unknown]
  - Dizziness [Unknown]

NARRATIVE: CASE EVENT DATE: 20211215
